FAERS Safety Report 11138024 (Version 1)
Quarter: 2015Q2

REPORT INFORMATION
  Report Type: Spontaneous
  Country: US (occurrence: US)
  Receive Date: 20150526
  Receipt Date: 20150526
  Transmission Date: 20150821
  Serious: No
  Sender: FDA-Public Use
  Company Number: US-MALLINCKRODT-T201500031

PATIENT
  Age: 28 Year
  Sex: Male

DRUGS (1)
  1. H.P. ACTHAR [Suspect]
     Active Substance: CORTICOTROPIN
     Indication: IGA NEPHROPATHY
     Dosage: 80 U, BIWEEKLY
     Route: 030
     Dates: start: 20150102

REACTIONS (8)
  - Myalgia [Unknown]
  - Injection site inflammation [Unknown]
  - Weight increased [Unknown]
  - Injection site bruising [Unknown]
  - Injection site rash [Unknown]
  - Increased appetite [Unknown]
  - Drug administration error [Recovered/Resolved]
  - Blood glucose increased [Unknown]

NARRATIVE: CASE EVENT DATE: 201501
